FAERS Safety Report 7766746-2 (Version None)
Quarter: 2011Q3

REPORT INFORMATION
  Report Type: 
  Country: None (occurrence: None)
  Receive Date: 20110922
  Receipt Date: 20110318
  Transmission Date: 20111222
  Serious: Yes (Other)
  Sender: FDA-Public Use
  Company Number: US-ASTRAZENECA-2007UW05005

PATIENT
  Age: 17479 Day
  Sex: Female
  Weight: 59 kg

DRUGS (6)
  1. CYMBALTA [Concomitant]
  2. ABILIFY [Concomitant]
     Dates: start: 20100601
  3. WELLBUTRON [Concomitant]
  4. LAMICTAL [Concomitant]
  5. CLONAZEPAM [Concomitant]
     Dosage: 1-2 MG
  6. SEROQUEL [Suspect]
     Indication: SLEEP DISORDER
     Route: 048
     Dates: start: 20020601, end: 20070501

REACTIONS (1)
  - PANCREATITIS [None]
